FAERS Safety Report 14102442 (Version 1)
Quarter: 2017Q4

REPORT INFORMATION
  Report Type: Spontaneous
  Country: LV (occurrence: LV)
  Receive Date: 20171018
  Receipt Date: 20171018
  Transmission Date: 20180321
  Serious: Yes (Hospitalization)
  Sender: FDA-Public Use
  Company Number: LV-PFIZER INC-2017446969

PATIENT
  Age: 64 Year
  Sex: Male

DRUGS (1)
  1. AXITINIB [Suspect]
     Active Substance: AXITINIB
     Indication: RENAL CANCER METASTATIC
     Dosage: 5 MG, 2X/DAY
     Dates: start: 20170207

REACTIONS (2)
  - Ileus [Unknown]
  - Anuria [Unknown]

NARRATIVE: CASE EVENT DATE: 20170903
